FAERS Safety Report 7565551-X (Version None)
Quarter: 2011Q2

REPORT INFORMATION
  Report Type: 
  Country: None (occurrence: None)
  Receive Date: 20110615
  Receipt Date: 20110607
  Transmission Date: 20111010
  Serious: Yes (Death)
  Sender: FDA-Public Use
  Company Number: KV201100090

PATIENT
  Age: 11 Year
  Sex: Male

DRUGS (3)
  1. PREDNISOLONE [Suspect]
     Indication: CROHN'S DISEASE
  2. MESALAMINE [Concomitant]
  3. AZATHIOPRINE [Suspect]
     Indication: CROHN'S DISEASE

REACTIONS (1)
  - HISTIOCYTOSIS HAEMATOPHAGIC [None]
